FAERS Safety Report 8143672-0 (Version None)
Quarter: 2012Q1

REPORT INFORMATION
  Report Type: 
  Country: None (occurrence: None)
  Receive Date: 20120217
  Receipt Date: 20120210
  Transmission Date: 20120608
  Serious: Yes (Death)
  Sender: FDA-Public Use
  Company Number: US-SANOFI-AVENTIS-2012SA009964

PATIENT
  Sex: Female

DRUGS (2)
  1. ELOXATIN [Suspect]
     Dosage: EVERY 3 WEEKS
     Route: 041
  2. ELOXATIN [Suspect]
     Dosage: EVERY 3 WEEKS
     Route: 041
     Dates: start: 20110101, end: 20110101

REACTIONS (1)
  - DEATH [None]
